FAERS Safety Report 13304812 (Version 1)
Quarter: 2017Q1

REPORT INFORMATION
  Report Type: Spontaneous
  Country: TR (occurrence: TR)
  Receive Date: 20170308
  Receipt Date: 20170308
  Transmission Date: 20170428
  Serious: Yes (Life-Threatening, Hospitalization, Disabling)
  Sender: FDA-Public Use
  Company Number: TR-GLENMARK PHARMACEUTICALS-2017GMK026650

PATIENT
  Age: 3 Year
  Sex: Female

DRUGS (2)
  1. THEOPHYLLINE [Suspect]
     Active Substance: THEOPHYLLINE ANHYDROUS
     Indication: PRODUCT USED FOR UNKNOWN INDICATION
     Dosage: UNK
     Route: 048
  2. INDAPAMIDE. [Suspect]
     Active Substance: INDAPAMIDE
     Indication: PRODUCT USED FOR UNKNOWN INDICATION
     Dosage: UNK
     Route: 048

REACTIONS (18)
  - Respiratory failure [Unknown]
  - Tachycardia [Unknown]
  - Brain oedema [Unknown]
  - Wrong patient received medication [Unknown]
  - Dry mouth [Unknown]
  - Hypoperfusion [Unknown]
  - Vomiting [Unknown]
  - Status epilepticus [Unknown]
  - Neurological symptom [Unknown]
  - Pyrexia [Recovering/Resolving]
  - Hypoglycaemia [Unknown]
  - Ischaemia [Unknown]
  - Hypotension [Recovered/Resolved]
  - Toxicity to various agents [Unknown]
  - Renal impairment [Unknown]
  - Loss of consciousness [Unknown]
  - Lid sulcus deepened [Unknown]
  - Dehydration [Unknown]
